FAERS Safety Report 7060509-1 (Version None)
Quarter: 2010Q4

REPORT INFORMATION
  Report Type: 
  Country: None (occurrence: None)
  Receive Date: 20101025
  Receipt Date: 20101013
  Transmission Date: 20110411
  Serious: Yes (Death)
  Sender: FDA-Public Use
  Company Number: IT-PFIZER INC-2010130437

PATIENT
  Sex: Female

DRUGS (2)
  1. VINCRISTINE SULFATE [Suspect]
  2. DOXORUBICIN HCL [Suspect]

REACTIONS (3)
  - DISSEMINATED INTRAVASCULAR COAGULATION [None]
  - HEPATITIS ACUTE [None]
  - SEPSIS [None]
